FAERS Safety Report 6412684-7 (Version None)
Quarter: 2009Q4

REPORT INFORMATION
  Report Type: 
  Country: None (occurrence: None)
  Receive Date: 20091023
  Receipt Date: 20091019
  Transmission Date: 20100525
  Serious: Yes (Death)
  Sender: FDA-Public Use
  Company Number: PHHY2009BR45456

PATIENT

DRUGS (1)
  1. CODATEN [Suspect]
     Route: 048

REACTIONS (2)
  - DEATH [None]
  - MALAISE [None]
